FAERS Safety Report 4889679-8 (Version None)
Quarter: 2006Q1

REPORT INFORMATION
  Report Type: 
  Country: None (occurrence: None)
  Receive Date: 20060120
  Receipt Date: 20060112
  Transmission Date: 20060701
  Serious: Yes (Hospitalization)
  Sender: FDA-Public Use
  Company Number: 2005SP004503

PATIENT
  Age: 89 Year
  Sex: Female
  Weight: 68.0396 kg

DRUGS (8)
  1. LUNESTA [Suspect]
     Indication: INSOMNIA
     Dosage: 2 MG; HS; ORAL
     Route: 048
     Dates: start: 20051001
  2. TYLENOL (CAPLET) [Concomitant]
  3. TYLENOL-500 [Concomitant]
  4. CENTRUM SILVER [Concomitant]
  5. MULTIVITAMIN [Concomitant]
  6. VITAMIN E [Concomitant]
  7. ANTIHYPERTENSIVES [Concomitant]
  8. TEMAZEPAM [Concomitant]

REACTIONS (3)
  - DRUG DEPENDENCE [None]
  - MIDDLE INSOMNIA [None]
  - PNEUMONIA [None]
